FAERS Safety Report 16798360 (Version 12)
Quarter: 2020Q1

REPORT INFORMATION
  Report Type: Spontaneous
  Country: US (occurrence: US)
  Receive Date: 20190912
  Receipt Date: 20200201
  Transmission Date: 20200409
  Serious: Yes (Other)
  Sender: FDA-Public Use
  Company Number: US-SUN PHARMACEUTICAL INDUSTRIES LTD-2019R1-220563

PATIENT
  Sex: Female

DRUGS (6)
  1. AMBRISENTAN [Suspect]
     Active Substance: AMBRISENTAN
     Indication: PRODUCT USED FOR UNKNOWN INDICATION
     Dosage: 5 MILLIGRAM, QD
     Route: 048
     Dates: start: 20190717
  2. SILDENAFIL. [Concomitant]
     Active Substance: SILDENAFIL
     Indication: PRODUCT USED FOR UNKNOWN INDICATION
     Dosage: UNK
     Route: 065
  3. UPTRAVI [Concomitant]
     Active Substance: SELEXIPAG
     Dosage: UNK (1200 MICROGRAM)
     Route: 065
  4. IBUPROFEN. [Suspect]
     Active Substance: IBUPROFEN
     Indication: PRODUCT USED FOR UNKNOWN INDICATION
     Route: 065
  5. UPTRAVI [Concomitant]
     Active Substance: SELEXIPAG
     Indication: PRODUCT USED FOR UNKNOWN INDICATION
     Dosage: 600 MICROGRAM, BID
     Route: 065
  6. AMLODIPINE [Concomitant]
     Active Substance: AMLODIPINE BESYLATE
     Indication: PRODUCT USED FOR UNKNOWN INDICATION
     Dosage: UNK
     Route: 065

REACTIONS (22)
  - Pain in extremity [Not Recovered/Not Resolved]
  - Arthralgia [Unknown]
  - Burning sensation [Unknown]
  - Chest discomfort [Unknown]
  - Dysphonia [Unknown]
  - Pain [Unknown]
  - Somnolence [Unknown]
  - Drug ineffective [Unknown]
  - Myalgia [Unknown]
  - Dyspnoea [Unknown]
  - Immune system disorder [Unknown]
  - Peripheral swelling [Unknown]
  - Eye disorder [Unknown]
  - Dizziness [Unknown]
  - Flushing [Unknown]
  - Pain in jaw [Unknown]
  - Swelling face [Unknown]
  - Scleroderma [Unknown]
  - Oedema [Unknown]
  - Fatigue [Not Recovered/Not Resolved]
  - Headache [Unknown]
  - Eructation [Unknown]

NARRATIVE: CASE EVENT DATE: 2019
